FAERS Safety Report 12637479 (Version 1)
Quarter: 2016Q3

REPORT INFORMATION
  Report Type: Spontaneous
  Country: US (occurrence: US)
  Receive Date: 20160809
  Receipt Date: 20160809
  Transmission Date: 20161109
  Serious: No
  Sender: FDA-Public Use
  Company Number: US-BEH-2016062865

PATIENT
  Age: 53 Year
  Sex: Female
  Weight: 112 kg

DRUGS (43)
  1. FERROUS SULFATE. [Concomitant]
     Active Substance: FERROUS SULFATE
  2. SENNA [Concomitant]
     Active Substance: SENNA LEAF\SENNOSIDES\SENNOSIDES A AND B
  3. SINGULAIR [Concomitant]
     Active Substance: MONTELUKAST SODIUM
  4. HYDROCODONE -ACETAMINOPHEN [Concomitant]
  5. OMEGA-3 ACIDS [Concomitant]
     Active Substance: OMEGA-3 FATTY ACIDS
  6. ENBREL [Concomitant]
     Active Substance: ETANERCEPT
  7. KLONOPIN [Concomitant]
     Active Substance: CLONAZEPAM
  8. NORTRIPTYLINE [Concomitant]
     Active Substance: NORTRIPTYLINE
  9. CENTRUM MULTIVITAMIN [Concomitant]
  10. BECLOMETHASONE [Concomitant]
     Active Substance: BECLOMETHASONE
  11. FISH OIL [Concomitant]
     Active Substance: FISH OIL
  12. PRIVIGEN [Suspect]
     Active Substance: HUMAN IMMUNOGLOBULIN G
     Indication: BEHCET^S SYNDROME
     Route: 042
     Dates: start: 20140911
  13. ACETAMINOPHEN. [Concomitant]
     Active Substance: ACETAMINOPHEN
  14. NORMAL SALINE [Concomitant]
     Active Substance: SODIUM CHLORIDE
  15. LMX [Concomitant]
     Active Substance: LIDOCAINE
  16. SODIUM CHLORIDE. [Concomitant]
     Active Substance: SODIUM CHLORIDE
  17. LEVOTHYROXINE. [Concomitant]
     Active Substance: LEVOTHYROXINE
  18. PRAVACHOL [Concomitant]
     Active Substance: PRAVASTATIN SODIUM
  19. TEMOVATE [Concomitant]
     Active Substance: CLOBETASOL PROPIONATE
  20. ASPIRIN. [Concomitant]
     Active Substance: ASPIRIN
  21. XYLOCAINE [Concomitant]
     Active Substance: LIDOCAINE HYDROCHLORIDE
  22. FOLIC ACID. [Concomitant]
     Active Substance: FOLIC ACID
  23. CYMBALTA [Concomitant]
     Active Substance: DULOXETINE HYDROCHLORIDE
  24. AMBIEN [Concomitant]
     Active Substance: ZOLPIDEM TARTRATE
  25. FLONASE [Concomitant]
     Active Substance: FLUTICASONE PROPIONATE
  26. CALCIUM+D [Concomitant]
  27. LIDOCAINE-HC [Concomitant]
  28. FLOMAX [Concomitant]
     Active Substance: TAMSULOSIN HYDROCHLORIDE
  29. DANTRIUM [Concomitant]
     Active Substance: DANTROLENE SODIUM
  30. PREDNISONE. [Concomitant]
     Active Substance: PREDNISONE
  31. DIPHENHYDRAMINE. [Concomitant]
     Active Substance: DIPHENHYDRAMINE
  32. EPIPEN [Concomitant]
     Active Substance: EPINEPHRINE
  33. EFFEXOR XR [Concomitant]
     Active Substance: VENLAFAXINE HYDROCHLORIDE
  34. ALBUTEROL. [Concomitant]
     Active Substance: ALBUTEROL
  35. PRIVIGEN [Suspect]
     Active Substance: HUMAN IMMUNOGLOBULIN G
     Indication: HYPOGAMMAGLOBULINAEMIA
     Route: 042
     Dates: start: 20140911
  36. VALIUM [Concomitant]
     Active Substance: DIAZEPAM
  37. BACLOFEN. [Concomitant]
     Active Substance: BACLOFEN
  38. SAVELLA [Concomitant]
     Active Substance: MILNACIPRAN HYDROCHLORIDE
  39. MIRALAX [Concomitant]
     Active Substance: POLYETHYLENE GLYCOL 3350
  40. THALOMID [Concomitant]
     Active Substance: THALIDOMIDE
  41. QVAR [Concomitant]
     Active Substance: BECLOMETHASONE DIPROPIONATE
  42. PRILOSEC [Concomitant]
     Active Substance: OMEPRAZOLE MAGNESIUM
  43. KEPPRA [Concomitant]
     Active Substance: LEVETIRACETAM

REACTIONS (3)
  - Vomiting [Unknown]
  - Diarrhoea [Unknown]
  - Fatigue [Unknown]

NARRATIVE: CASE EVENT DATE: 20160406
